FAERS Safety Report 4335289-0 (Version None)
Quarter: 2004Q2

REPORT INFORMATION
  Report Type: 
  Country: None (occurrence: None)
  Receive Date: 20040408
  Receipt Date: 20040408
  Transmission Date: 20050107
  Serious: Yes (Life-Threatening, Hospitalization)
  Sender: FDA-Public Use
  Company Number: None

PATIENT
  Age: 52 Year
  Sex: Female
  Weight: 54.4316 kg

DRUGS (10)
  1. PACLITAXEL [Suspect]
     Indication: PERITONEAL CARCINOMA
     Dosage: 275 MG IV (ONE DOSE)
     Route: 042
     Dates: start: 20040316
  2. CARBOPLATIN [Suspect]
     Indication: PERITONEAL CARCINOMA
     Dosage: 708 MG IV (ONE DOSE)
     Route: 042
     Dates: start: 20040316
  3. DECODRONE [Concomitant]
  4. ZOFRAN [Concomitant]
  5. CIMETIDINE HCL [Concomitant]
  6. BENADRYL [Concomitant]
  7. EPOGEN [Concomitant]
  8. DUREGISIC PATCH [Concomitant]
  9. COMPAZINE [Concomitant]
  10. COLACE AND FE [Concomitant]

REACTIONS (9)
  - CELLULITIS [None]
  - EPISTAXIS [None]
  - HAEMATOCHEZIA [None]
  - HAEMATURIA [None]
  - PANCYTOPENIA [None]
  - PETECHIAE [None]
  - SALIVARY GLAND DISORDER [None]
  - STOMATITIS [None]
  - URINARY TRACT INFECTION [None]
